FAERS Safety Report 23658451 (Version 1)
Quarter: 2024Q1

REPORT INFORMATION
  Report Type: Spontaneous
  Country: US (occurrence: None)
  Receive Date: 20240320
  Receipt Date: 20240320
  Transmission Date: 20240409
  Serious: Yes (Hospitalization, Disabling)
  Sender: FDA-Public Use
  Company Number: None

PATIENT
  Age: 26 Year
  Sex: Female
  Weight: 113 kg

DRUGS (1)
  1. TENECTEPLASE [Suspect]
     Active Substance: TENECTEPLASE
     Indication: Ischaemic stroke
     Dosage: OTHER FREQUENCY : ONCE;?
     Route: 042
     Dates: start: 20240310, end: 20240310

REACTIONS (5)
  - Snoring [None]
  - Basal ganglia infarction [None]
  - Cerebral haemorrhage [None]
  - Retention cyst [None]
  - Encephalitis [None]

NARRATIVE: CASE EVENT DATE: 20240310
